FAERS Safety Report 5486538-7 (Version None)
Quarter: 2007Q4

REPORT INFORMATION
  Report Type: 
  Country: None (occurrence: None)
  Receive Date: 20071016
  Receipt Date: 20071005
  Transmission Date: 20080405
  Serious: Yes (Hospitalization)
  Sender: FDA-Public Use
  Company Number: JP-BAYER-200710582BYL

PATIENT
  Age: 76 Year
  Sex: Male
  Weight: 56 kg

DRUGS (6)
  1. ASPIRIN [Suspect]
     Dosage: TOTAL DAILY DOSE: 100 MG  UNIT DOSE: 100 MG
     Route: 048
  2. CETAPRI [Suspect]
     Route: 048
  3. DICHLOTRIDE [Concomitant]
     Dosage: TOTAL DAILY DOSE: 25 MG  UNIT DOSE: 25 MG
     Route: 048
  4. NU-LOTAN [Concomitant]
     Dosage: TOTAL DAILY DOSE: 25 MG  UNIT DOSE: 25 MG
     Route: 048
  5. GLYBURIDE [Concomitant]
     Dosage: UNIT DOSE: 2.5 MG
     Route: 048
  6. VOGSEAL [Concomitant]
     Dosage: TOTAL DAILY DOSE: 0.6 MG  UNIT DOSE: 0.2 MG
     Route: 048

REACTIONS (3)
  - LARGE INTESTINAL ULCER [None]
  - MELAENA [None]
  - RECTAL ULCER [None]
